FAERS Safety Report 4683920-2 (Version None)
Quarter: 2005Q2

REPORT INFORMATION
  Report Type: 
  Country: None (occurrence: None)
  Receive Date: 20050602
  Receipt Date: 20050404
  Transmission Date: 20051028
  Serious: No
  Sender: FDA-Public Use
  Company Number: USA050188052

PATIENT
  Age: 60 Year
  Sex: Female
  Weight: 68 kg

DRUGS (5)
  1. CYMBALTA [Suspect]
     Indication: NEUROPATHIC PAIN
     Dosage: 30 MG DAY
     Dates: start: 20050105, end: 20050107
  2. PLAVIX [Concomitant]
  3. NEURONTIN (GABAPENTIN PFIZER) [Concomitant]
  4. PLAQUENIL [Concomitant]
  5. CLONAZEPAM [Concomitant]

REACTIONS (4)
  - FATIGUE [None]
  - HEADACHE [None]
  - HYPERTENSION [None]
  - NAUSEA [None]
